FAERS Safety Report 18769029 (Version 4)
Quarter: 2021Q1

REPORT INFORMATION
  Report Type: Spontaneous
  Country: US (occurrence: US)
  Receive Date: 20210121
  Receipt Date: 20210208
  Transmission Date: 20210419
  Serious: No
  Sender: FDA-Public Use
  Company Number: US-PFIZER INC-2021035163

PATIENT
  Age: 44 Year
  Sex: Female

DRUGS (1)
  1. DESVENLAFAXINE SUCCINATE MONOHYDRATE [Suspect]
     Active Substance: DESVENLAFAXINE SUCCINATE
     Dosage: UNK

REACTIONS (7)
  - Somnolence [Not Recovered/Not Resolved]
  - Hypersomnia [Not Recovered/Not Resolved]
  - Fatigue [Not Recovered/Not Resolved]
  - Drug ineffective [Unknown]
  - Malaise [Unknown]
  - Lethargy [Not Recovered/Not Resolved]
  - Withdrawal syndrome [Not Recovered/Not Resolved]
